FAERS Safety Report 23776191 (Version 1)
Quarter: 2024Q2

REPORT INFORMATION
  Report Type: Spontaneous
  Country: DE (occurrence: DE)
  Receive Date: 20240424
  Receipt Date: 20240424
  Transmission Date: 20240716
  Serious: Yes (Other)
  Sender: FDA-Public Use
  Company Number: DE-STRIDES ARCOLAB LIMITED-2024SP004662

PATIENT
  Age: 54 Year
  Sex: Male

DRUGS (2)
  1. ACETAZOLAMIDE [Suspect]
     Active Substance: ACETAZOLAMIDE
     Indication: Corneal oedema
     Dosage: UNK (BEFORE AND ONE HOUR AFTER COMMENCING CRITICAL ENDURANCE SPORTS)
     Route: 048
  2. SODIUM CHLORIDE [Suspect]
     Active Substance: SODIUM CHLORIDE
     Indication: Corneal oedema
     Dosage: UNK (EVERY 30?MINUTES DURING SPORTS ACTIVITY AND AFTER, THE ONSET OF VISON BLURRING)
     Route: 065

REACTIONS (1)
  - Therapy non-responder [Unknown]
